FAERS Safety Report 5289538-5 (Version None)
Quarter: 2007Q2

REPORT INFORMATION
  Report Type: 
  Country: None (occurrence: None)
  Receive Date: 20070406
  Receipt Date: 20070322
  Transmission Date: 20071010
  Serious: Yes (Hospitalization, Other)
  Sender: FDA-Public Use
  Company Number: DE-GENENTECH-239394

PATIENT
  Sex: Female

DRUGS (15)
  1. HERCEPTIN [Suspect]
     Indication: BREAST CANCER METASTATIC
     Route: 042
     Dates: start: 20070201
  2. CAPECITABINE [Suspect]
     Indication: BREAST CANCER METASTATIC
  3. VINORELBINE [Suspect]
     Indication: BREAST CANCER METASTATIC
  4. AROMASIN [Concomitant]
     Indication: DRUG USE FOR UNKNOWN INDICATION
  5. TAMOXIFEN CITRATE [Concomitant]
     Indication: DRUG USE FOR UNKNOWN INDICATION
  6. TAXOL [Concomitant]
     Indication: DRUG USE FOR UNKNOWN INDICATION
  7. ARIMIDEX [Concomitant]
     Indication: DRUG USE FOR UNKNOWN INDICATION
  8. AREDIA [Concomitant]
     Indication: DRUG USE FOR UNKNOWN INDICATION
  9. BETA BLOCKER NOS [Concomitant]
     Indication: DRUG USE FOR UNKNOWN INDICATION
  10. METOPROLOL SUCCINATE [Concomitant]
     Indication: DRUG USE FOR UNKNOWN INDICATION
  11. ESOMEPRAZOLE MAGNESIUM [Concomitant]
     Indication: DRUG USE FOR UNKNOWN INDICATION
  12. MAGNESIUM VERLA [Concomitant]
     Indication: DRUG USE FOR UNKNOWN INDICATION
  13. RAMIPRIL [Concomitant]
     Indication: DRUG USE FOR UNKNOWN INDICATION
  14. CARBIMAZOLE [Concomitant]
     Indication: DRUG USE FOR UNKNOWN INDICATION
  15. MEDICATION (UNK INGREDIENT) [Concomitant]
     Indication: DRUG USE FOR UNKNOWN INDICATION

REACTIONS (14)
  - ANOREXIA [None]
  - ASCITES [None]
  - DEPRESSION [None]
  - DISEASE PROGRESSION [None]
  - GASTRIC POLYPS [None]
  - GENERAL PHYSICAL HEALTH DETERIORATION [None]
  - HYPERTHYROIDISM [None]
  - HYPOGLYCAEMIA [None]
  - INSULINOMA [None]
  - PLEURAL EFFUSION [None]
  - POLYNEUROPATHY [None]
  - SLEEP DISORDER [None]
  - SYNCOPE [None]
  - VENTRICULAR EXTRASYSTOLES [None]
